FAERS Safety Report 23959009 (Version 1)
Quarter: 2024Q2

REPORT INFORMATION
  Report Type: Spontaneous
  Country: JP (occurrence: JP)
  Receive Date: 20240611
  Receipt Date: 20240611
  Transmission Date: 20240716
  Serious: Yes (Other)
  Sender: FDA-Public Use
  Company Number: JP-AMNEAL PHARMACEUTICALS-2024-AMRX-01434

PATIENT

DRUGS (2)
  1. ONGENTYS [Suspect]
     Active Substance: OPICAPONE
     Indication: Parkinson^s disease
     Dosage: 25 MILLIGRAM
     Route: 048
     Dates: end: 202404
  2. LEVODOPA [Concomitant]
     Active Substance: LEVODOPA
     Indication: Product used for unknown indication
     Dosage: 450 MILLIGRAM
     Route: 065

REACTIONS (4)
  - Dementia with Lewy bodies [Unknown]
  - Hallucination [Unknown]
  - Mini mental status examination abnormal [Unknown]
  - Delusion [Unknown]

NARRATIVE: CASE EVENT DATE: 20240401
